FAERS Safety Report 15441300 (Version 1)
Quarter: 2018Q3

REPORT INFORMATION
  Report Type: Spontaneous
  Country: US (occurrence: US)
  Receive Date: 20180928
  Receipt Date: 20180928
  Transmission Date: 20181010
  Serious: No
  Sender: FDA-Public Use
  Company Number: US-JUBILANT CADISTA PHARMACEUTICALS-2017JUB00381

PATIENT
  Sex: Female
  Weight: 56.69 kg

DRUGS (12)
  1. MULTIVITAMIN [Concomitant]
     Active Substance: VITAMINS
  2. PREDNISONE. [Suspect]
     Active Substance: PREDNISONE
     Indication: ACARODERMATITIS
     Dosage: UNK UNK, 1X/DAY
     Route: 048
     Dates: start: 2017, end: 20171103
  3. VITAMIN D3 [Concomitant]
     Active Substance: CHOLECALCIFEROL
  4. PREDNISONE. [Suspect]
     Active Substance: PREDNISONE
     Indication: ACARODERMATITIS
     Dosage: UNK UNK, 1X/DAY
     Route: 048
     Dates: start: 2017
  5. PREDNISONE. [Suspect]
     Active Substance: PREDNISONE
     Indication: ACARODERMATITIS
     Dosage: UNK UNK, 1X/DAY
     Route: 048
     Dates: start: 2017
  6. COLACE [Concomitant]
     Active Substance: DOCUSATE SODIUM
     Dosage: 1 DOSAGE UNITS, 1X/DAY
  7. FERRIC SULFATE [Concomitant]
     Active Substance: FERRIC SULFATE
     Dosage: 325 MG, 1X/DAY
  8. PREDNISONE. [Suspect]
     Active Substance: PREDNISONE
     Indication: ACARODERMATITIS
     Dosage: UNK UNK, 1X/DAY
     Route: 048
     Dates: start: 20170826
  9. METAMUCIL [Concomitant]
     Active Substance: PLANTAGO SEED
     Dosage: UNK, 2X/DAY
  10. FISH OIL/OMEGA 3 [Concomitant]
     Dosage: 600 MG, 1X/DAY
  11. CALCIUM [Concomitant]
     Active Substance: CALCIUM
  12. REMERON [Concomitant]
     Active Substance: MIRTAZAPINE
     Dosage: UNK
     Dates: end: 20171107

REACTIONS (6)
  - Decreased appetite [Unknown]
  - Diarrhoea [Unknown]
  - Abdominal pain [Unknown]
  - Fatigue [Not Recovered/Not Resolved]
  - Back pain [Unknown]
  - Nausea [Not Recovered/Not Resolved]

NARRATIVE: CASE EVENT DATE: 2017
